FAERS Safety Report 8783056 (Version 2)
Quarter: 2012Q4

REPORT INFORMATION
  Report Type: Report from Study
  Country: BE (occurrence: BE)
  Receive Date: 20120913
  Receipt Date: 20121106
  Transmission Date: 20130627
  Serious: Yes (Disabling)
  Sender: FDA-Public Use
  Company Number: BE-BAYER-2012-092202

PATIENT

DRUGS (2)
  1. NEXAVAR [Suspect]
     Indication: CARCINOMA HEPATOCELLULAR
     Dosage: Daily dose 800 mg
     Dates: start: 20120328
  2. NEXAVAR [Suspect]
     Indication: CARCINOMA HEPATOCELLULAR
     Dosage: 200 mg
     Dates: start: 2012, end: 20120828

REACTIONS (3)
  - Malnutrition [None]
  - Diarrhoea [None]
  - Fatigue [None]
